FAERS Safety Report 4728338-9 (Version None)
Quarter: 2005Q3

REPORT INFORMATION
  Report Type: 
  Country: None (occurrence: None)
  Receive Date: 20050727
  Receipt Date: 20050711
  Transmission Date: 20060218
  Serious: Yes (Death, Hospitalization)
  Sender: FDA-Public Use
  Company Number: A-US2005-09793

PATIENT
  Age: 44 Year
  Sex: Female
  Weight: 57 kg

DRUGS (10)
  1. TRACLEER [Suspect]
     Indication: PULMONARY HYPERTENSION
     Dosage: UNK MG, ORAL
     Route: 048
     Dates: start: 20041101, end: 20050401
  2. AVELOX [Concomitant]
  3. DOXYCYCLINE [Concomitant]
  4. SOLU-MEDROL [Concomitant]
  5. LASIX [Concomitant]
  6. LOVENOX [Concomitant]
  7. VENTOLIN [Concomitant]
  8. TYLENOL [Concomitant]
  9. WELLBUTRIN [Concomitant]
  10. OXYGEN (OXYGEN) [Concomitant]

REACTIONS (18)
  - ABDOMINAL PAIN UPPER [None]
  - ACUTE RESPIRATORY FAILURE [None]
  - ALANINE AMINOTRANSFERASE INCREASED [None]
  - ANAEMIA [None]
  - ASPARTATE AMINOTRANSFERASE INCREASED [None]
  - BACTERAEMIA [None]
  - BLOOD THYROID STIMULATING HORMONE INCREASED [None]
  - CHRONIC RESPIRATORY FAILURE [None]
  - COMPUTERISED TOMOGRAM ABNORMAL [None]
  - HYPOGAMMAGLOBULINAEMIA [None]
  - HYPONATRAEMIA [None]
  - LOBAR PNEUMONIA [None]
  - LUNG DISORDER [None]
  - NAUSEA [None]
  - PSEUDOMONAS INFECTION [None]
  - RENAL FAILURE ACUTE [None]
  - SPUTUM CULTURE POSITIVE [None]
  - VAGINAL CANDIDIASIS [None]
